FAERS Safety Report 9110428 (Version 1)
Quarter: 2013Q1

REPORT INFORMATION
  Report Type: Spontaneous
  Country: US (occurrence: US)
  Receive Date: 20130219
  Receipt Date: 20130219
  Transmission Date: 20140127
  Serious: No
  Sender: FDA-Public Use
  Company Number: US-BRISTOL-MYERS SQUIBB COMPANY-16928640

PATIENT
  Age: 41 Year
  Sex: Female
  Weight: 73.01 kg

DRUGS (5)
  1. ABATACEPT SUBQ INJECTION 125MG/ML [Suspect]
     Route: 058
  2. CALCIUM [Concomitant]
  3. MULTIVITAMIN [Concomitant]
  4. PREDNISONE [Concomitant]
  5. NORETHINDRONE + ETHINYLESTRADIOL [Concomitant]

REACTIONS (1)
  - Headache [Unknown]
